FAERS Safety Report 7586024-4 (Version None)
Quarter: 2011Q2

REPORT INFORMATION
  Report Type: 
  Country: None (occurrence: None)
  Receive Date: 20110624
  Receipt Date: 20110617
  Transmission Date: 20111010
  Serious: Yes (Death, Other)
  Sender: FDA-Public Use
  Company Number: 2010SP056516

PATIENT
  Age: 30 Year
  Sex: Female
  Weight: 129.2752 kg

DRUGS (2)
  1. NUVARING [Suspect]
     Indication: CONTRACEPTION
     Dates: start: 20080301, end: 20080516
  2. NUVARING [Suspect]
     Indication: CONTRACEPTION
     Dates: start: 20060101, end: 20070501

REACTIONS (9)
  - HYPERCOAGULATION [None]
  - MALAISE [None]
  - PALPITATIONS [None]
  - PHARYNGITIS STREPTOCOCCAL [None]
  - THROMBOSIS [None]
  - VULVOVAGINAL DISCOMFORT [None]
  - CARDIO-RESPIRATORY ARREST [None]
  - HERPES SIMPLEX [None]
  - PULMONARY EMBOLISM [None]
